FAERS Safety Report 5655328-4 (Version None)
Quarter: 2008Q1

REPORT INFORMATION
  Report Type: 
  Country: None (occurrence: None)
  Receive Date: 20080307
  Receipt Date: 20080226
  Transmission Date: 20080703
  Serious: Yes (Other)
  Sender: FDA-Public Use
  Company Number: US-BAYER-200713617BWH

PATIENT
  Age: 72 Year
  Sex: Female

DRUGS (7)
  1. NEXAVAR [Suspect]
     Indication: RENAL CELL CARCINOMA
     Dosage: TOTAL DAILY DOSE: 400 MG  UNIT DOSE: 200 MG
     Route: 048
     Dates: start: 20060401
  2. DIGITEK [Concomitant]
  3. SOTALOL [Concomitant]
  4. NEXIUM [Concomitant]
  5. ARICEPT [Concomitant]
  6. ALLEGRA [Concomitant]
  7. WARFARIN SODIUM [Concomitant]

REACTIONS (6)
  - CARDIAC DISORDER [None]
  - METASTASES TO CENTRAL NERVOUS SYSTEM [None]
  - METASTASES TO LIVER [None]
  - METASTASES TO LUNG [None]
  - METASTASIS [None]
  - THROMBOSIS [None]
